FAERS Safety Report 20224705 (Version 1)
Quarter: 2021Q4

REPORT INFORMATION
  Report Type: Spontaneous
  Country: DE (occurrence: DE)
  Receive Date: 20211223
  Receipt Date: 20211223
  Transmission Date: 20220303
  Serious: Yes (Other)
  Sender: FDA-Public Use
  Company Number: None

PATIENT
  Sex: Female
  Weight: 59 kg

DRUGS (2)
  1. OFLOXACIN [Suspect]
     Active Substance: OFLOXACIN
     Indication: Conjunctivitis
     Dosage: 8 DAYS EACH AND SEVERAL TIMES IF NECESSARY
     Dates: start: 20190804, end: 20210307
  2. CIPROFLOXACIN [Suspect]
     Active Substance: CIPROFLOXACIN
     Indication: Urinary tract infection
     Dosage: 5X CIPROFLOXACIN DURING THIS PERIOD 10 T 250 MG / 5 T 500 MG
     Route: 048
     Dates: start: 20161002, end: 20210131

REACTIONS (17)
  - Sjogren^s syndrome [Recovered/Resolved with Sequelae]
  - Scleritis [Recovered/Resolved with Sequelae]
  - Cartilage injury [Not Recovered/Not Resolved]
  - Tendon injury [Not Recovered/Not Resolved]
  - Tendon injury [Not Recovered/Not Resolved]
  - Arthritis [Not Recovered/Not Resolved]
  - Arthritis [Not Recovered/Not Resolved]
  - Tendonitis [Not Recovered/Not Resolved]
  - Tendonitis [Not Recovered/Not Resolved]
  - Vertigo [Recovering/Resolving]
  - Insomnia [Recovering/Resolving]
  - Osteitis [Not Recovered/Not Resolved]
  - Paraesthesia [Recovering/Resolving]
  - Joint injury [Not Recovered/Not Resolved]
  - Headache [Recovering/Resolving]
  - Muscle injury [Not Recovered/Not Resolved]
  - Myositis [Not Recovered/Not Resolved]

NARRATIVE: CASE EVENT DATE: 20180101
